FAERS Safety Report 4513001-X (Version None)
Quarter: 2004Q4

REPORT INFORMATION
  Report Type: 
  Country: None (occurrence: None)
  Receive Date: 20041124
  Receipt Date: 20041116
  Transmission Date: 20050328
  Serious: Yes (Other)
  Sender: FDA-Public Use
  Company Number: 200415553BCC

PATIENT
  Age: 69 Year
  Sex: Female
  Weight: 68.0396 kg

DRUGS (4)
  1. ALEVE (CAPLET) [Suspect]
     Indication: ARTHRITIS
     Dosage: 440 MG, BID, ORAL
     Route: 048
     Dates: start: 20041114
  2. GEN-INDAPAMIDE [Concomitant]
  3. COVERSYL [Concomitant]
  4. RENEDIL [Concomitant]

REACTIONS (2)
  - MEDICATION ERROR [None]
  - METRORRHAGIA [None]
